FAERS Safety Report 12245858 (Version 1)
Quarter: 2016Q2

REPORT INFORMATION
  Report Type: Spontaneous
  Country: US (occurrence: None)
  Receive Date: 20160406
  Receipt Date: 20160406
  Transmission Date: 20160815
  Serious: Yes (Other)
  Sender: FDA-Public Use
  Company Number: None

PATIENT
  Age: 70 Year
  Sex: Male
  Weight: 111 kg

DRUGS (1)
  1. ENTEREG [Suspect]
     Active Substance: ALVIMOPAN
     Indication: POSTOPERATIVE ILEUS
     Route: 048
     Dates: start: 20160401, end: 20160403

REACTIONS (1)
  - Encephalopathy [None]

NARRATIVE: CASE EVENT DATE: 20160403
